FAERS Safety Report 8125602-0 (Version None)
Quarter: 2012Q1

REPORT INFORMATION
  Report Type: 
  Country: None (occurrence: None)
  Receive Date: 20120209
  Receipt Date: 20120203
  Transmission Date: 20120608
  Serious: Yes (Disabling, Other)
  Sender: FDA-Public Use
  Company Number: US-PFIZER INC-2011147822

PATIENT
  Sex: Female

DRUGS (2)
  1. ZOLOFT [Concomitant]
     Indication: HORMONE THERAPY
     Dosage: UNK
     Dates: start: 19950101
  2. CHANTIX [Suspect]
     Indication: SMOKING CESSATION THERAPY
     Dosage: STARTER PACK
     Dates: start: 20080201, end: 20080401

REACTIONS (4)
  - COGNITIVE DISORDER [None]
  - LOSS OF CONSCIOUSNESS [None]
  - CONVULSION [None]
  - DEPRESSION [None]
